FAERS Safety Report 5917105-6 (Version None)
Quarter: 2008Q4

REPORT INFORMATION
  Report Type: 
  Country: None (occurrence: None)
  Receive Date: 20081010
  Receipt Date: 20081010
  Transmission Date: 20090506
  Serious: No
  Sender: FDA-Public Use
  Company Number: None

PATIENT
  Sex: Female
  Weight: 106.5953 kg

DRUGS (1)
  1. DICLOFENAC SODIUM [Suspect]
     Indication: ARTHRITIS
     Dosage: ONE TABLET TWICE DAILY
     Dates: start: 20070101, end: 20080902

REACTIONS (8)
  - ABDOMINAL DISTENSION [None]
  - ANAL FISSURE [None]
  - ANORECTAL DISORDER [None]
  - FEELING ABNORMAL [None]
  - FLATULENCE [None]
  - HAEMORRHOIDS [None]
  - MUCOUS STOOLS [None]
  - STEVENS-JOHNSON SYNDROME [None]
